FAERS Safety Report 5390788-8 (Version None)
Quarter: 2007Q3

REPORT INFORMATION
  Report Type: 
  Country: None (occurrence: None)
  Receive Date: 20070718
  Receipt Date: 20070710
  Transmission Date: 20080115
  Serious: Yes (Death, Hospitalization)
  Sender: FDA-Public Use
  Company Number: CG-MERCK-0707USA01856

PATIENT
  Age: 31 Year
  Sex: Male

DRUGS (1)
  1. STROMECTOL [Suspect]
     Route: 048
     Dates: start: 20070313, end: 20070313

REACTIONS (11)
  - ARTHRALGIA [None]
  - COMA [None]
  - CONJUNCTIVAL HAEMORRHAGE [None]
  - DEATH [None]
  - FAECAL INCONTINENCE [None]
  - HAEMATURIA [None]
  - HEADACHE [None]
  - MYALGIA [None]
  - NUCHAL RIGIDITY [None]
  - PRURITUS [None]
  - PYREXIA [None]
